FAERS Safety Report 4752280-0 (Version None)
Quarter: 2005Q3

REPORT INFORMATION
  Report Type: 
  Country: None (occurrence: None)
  Receive Date: 20050825
  Receipt Date: 20050815
  Transmission Date: 20060218
  Serious: Yes (Hospitalization, Other)
  Sender: FDA-Public Use
  Company Number: US-GLAXOSMITHKLINE-A0570206A

PATIENT
  Age: 67 Year
  Sex: Male
  Weight: 90 kg

DRUGS (13)
  1. COMMIT [Suspect]
     Route: 048
     Dates: start: 20031101
  2. COMMIT [Suspect]
     Route: 048
     Dates: start: 20031101, end: 20031101
  3. ATENOLOL [Concomitant]
  4. NORVASC [Concomitant]
  5. PLAVIX [Concomitant]
  6. FLOMAX [Concomitant]
  7. LIPITOR [Concomitant]
  8. GEMFIBROZIL [Concomitant]
  9. DITROPAN XL [Concomitant]
  10. NEURONTIN [Concomitant]
  11. ACIPHEX [Concomitant]
  12. COUMADIN [Concomitant]
  13. GLUCOPHAGE [Concomitant]

REACTIONS (6)
  - ABDOMINAL PAIN UPPER [None]
  - COLITIS [None]
  - DEHYDRATION [None]
  - DRUG ABUSER [None]
  - NICOTINE DEPENDENCE [None]
  - RENAL FAILURE ACUTE [None]
